FAERS Safety Report 9232070 (Version 2)
Quarter: 2013Q2

REPORT INFORMATION
  Report Type: Spontaneous
  Country: BR (occurrence: BR)
  Receive Date: 20130415
  Receipt Date: 20130419
  Transmission Date: 20140414
  Serious: Yes (Hospitalization)
  Sender: FDA-Public Use
  Company Number: BR-ASTRAZENECA-2013SE23635

PATIENT
  Age: 67 Year
  Sex: Male
  Weight: 77 kg

DRUGS (4)
  1. CRESTOR [Suspect]
     Dosage: DAILY
     Route: 048
     Dates: start: 2011
  2. ASA [Suspect]
     Indication: CORONARY ARTERY OCCLUSION
     Dates: start: 20130321, end: 20130328
  3. CLOPIDOGREL [Suspect]
     Indication: CORONARY ARTERY OCCLUSION
     Dates: start: 20130321, end: 20130328
  4. LOTAR [Concomitant]
     Indication: HYPERTENSION
     Dosage: DAILY

REACTIONS (2)
  - Coronary artery occlusion [Recovered/Resolved]
  - Dermatitis allergic [Recovered/Resolved]
